FAERS Safety Report 5836782-1 (Version None)
Quarter: 2008Q3

REPORT INFORMATION
  Report Type: 
  Country: None (occurrence: None)
  Receive Date: 20080805
  Receipt Date: 20080723
  Transmission Date: 20090109
  Serious: No
  Sender: FDA-Public Use
  Company Number: LIT-08-0008

PATIENT
  Age: 50 Year
  Sex: Female

DRUGS (1)
  1. FUROSEMIDE [Suspect]

REACTIONS (6)
  - BURNING SENSATION [None]
  - DRUG INEFFECTIVE [None]
  - HAEMORRHAGE [None]
  - MOUTH ULCERATION [None]
  - PAIN [None]
  - TONGUE ULCERATION [None]
